FAERS Safety Report 4971313-X (Version None)
Quarter: 2006Q2

REPORT INFORMATION
  Report Type: 
  Country: None (occurrence: None)
  Receive Date: 20060413
  Receipt Date: 20060404
  Transmission Date: 20061013
  Serious: Yes (Hospitalization)
  Sender: FDA-Public Use
  Company Number: US-MERCK-0604USA00724

PATIENT
  Age: 75 Year
  Sex: Female
  Weight: 69 kg

DRUGS (2)
  1. VIOXX [Suspect]
     Indication: ARTHRALGIA
     Route: 048
     Dates: start: 20030501, end: 20031115
  2. VIOXX [Suspect]
     Route: 048
     Dates: start: 20030501, end: 20031115

REACTIONS (3)
  - CARDIAC VALVE DISEASE [None]
  - EMOTIONAL DISTRESS [None]
  - MYOCARDIAL INFARCTION [None]
